FAERS Safety Report 4802959-7 (Version None)
Quarter: 2005Q4

REPORT INFORMATION
  Report Type: 
  Country: None (occurrence: None)
  Receive Date: 20051013
  Receipt Date: 20050929
  Transmission Date: 20060501
  Serious: Yes (Life-Threatening, Hospitalization, Other)
  Sender: FDA-Public Use
  Company Number: H-CH2005-10453

PATIENT
  Age: 23 Year
  Sex: Female

DRUGS (19)
  1. BOSENTAN (BOSENTAN) TABLET [Suspect]
     Indication: PULMONARY HYPERTENSION
     Dosage: SEE IMAGE
     Route: 048
     Dates: start: 20040705, end: 20040801
  2. BOSENTAN (BOSENTAN) TABLET [Suspect]
     Indication: PULMONARY HYPERTENSION
     Dosage: SEE IMAGE
     Route: 048
     Dates: start: 20040802, end: 20050228
  3. BOSENTAN (BOSENTAN) TABLET [Suspect]
     Indication: PULMONARY HYPERTENSION
     Dosage: SEE IMAGE
     Route: 048
     Dates: start: 20050314, end: 20050811
  4. MARCUMAR [Suspect]
     Dosage: O.D., DEPENDENT ON INR,ORAL
     Route: 048
     Dates: start: 20050101, end: 20050811
  5. IMURAN [Suspect]
     Dosage: 100 MG, OD, ORAL
     Route: 048
     Dates: start: 20031101, end: 20050811
  6. ALENDRONATE SODIUM [Concomitant]
  7. CALCICHEW (CALCIUM CARBONATE) [Concomitant]
  8. SINTROM MITIS (ACENOCOUMAROL) [Concomitant]
  9. HYDROCORT (HYDROCORTISONE ACETATE)CREAM [Concomitant]
  10. PREDNISONE [Concomitant]
  11. DESLORATADINE (DESLORATADINE) [Concomitant]
  12. OCULENTUM SIMPLEX (CETOSTEARYL ALCOHOL, WOOL FAT, PARAFFIN, PETROLATUM [Concomitant]
  13. MICROGYNON (ETHINYLESTRADIOL, LEVONORGESTREL) [Concomitant]
  14. ISOSORBIDE (ISOSORBIDE) [Concomitant]
  15. CALMURID (BETAINE, LACTIC ACID, UREA) [Concomitant]
  16. BETAMETHASONE [Concomitant]
  17. FUCIDINE CAP [Concomitant]
  18. HYDROCET (HYDROCODONE BITARTRATE, PARACETAMOL) [Concomitant]
  19. VASELINE (PARAFFIN SOFT) [Concomitant]

REACTIONS (20)
  - ABDOMINAL PAIN [None]
  - AUTOIMMUNE HEPATITIS [None]
  - BLOOD ALBUMIN DECREASED [None]
  - BLOOD IMMUNOGLOBULIN G INCREASED [None]
  - BLOOD URINE PRESENT [None]
  - CHOLANGIOLITIS [None]
  - DILATATION VENTRICULAR [None]
  - EROSIVE DUODENITIS [None]
  - GASTROINTESTINAL HAEMORRHAGE [None]
  - HAEMATEMESIS [None]
  - HAEMATOCRIT DECREASED [None]
  - HAEMOGLOBIN DECREASED [None]
  - HEPATIC FIBROSIS [None]
  - HEPATOTOXICITY [None]
  - INTERNATIONAL NORMALISED RATIO INCREASED [None]
  - PNEUMONIA [None]
  - RETROPERITONEAL HAEMATOMA [None]
  - UPPER GASTROINTESTINAL HAEMORRHAGE [None]
  - VENTRICULAR FAILURE [None]
  - VIRAL INFECTION [None]
